FAERS Safety Report 9883687 (Version 1)
Quarter: 2014Q1

REPORT INFORMATION
  Report Type: Report from Study
  Country: NL (occurrence: NL)
  Receive Date: 20140210
  Receipt Date: 20140210
  Transmission Date: 20141002
  Serious: Yes (Life-Threatening, Hospitalization)
  Sender: FDA-Public Use
  Company Number: NL-ROCHE-1343861

PATIENT
  Age: 67 Year
  Sex: Female
  Weight: 42 kg

DRUGS (6)
  1. RITUXIMAB [Suspect]
     Indication: MALIGNANT LYMPHOID NEOPLASM
     Dosage: LAST DIOSE PRIOR TO SAE: 07/JAN/2014
     Route: 042
     Dates: start: 20131224
  2. METHOTREXATE [Suspect]
     Indication: MALIGNANT LYMPHOID NEOPLASM
     Dosage: LAST DOSE PRIOR TO SAE : 08/JAN/2014
     Route: 042
     Dates: start: 20131225
  3. TENIPOSIDE [Suspect]
     Indication: MALIGNANT LYMPHOID NEOPLASM
     Dosage: LAST DOSE PRIOR TO SAE: 27/DEC/2013
     Route: 042
     Dates: start: 20131226
  4. PREDNISOLONE [Suspect]
     Indication: MALIGNANT LYMPHOID NEOPLASM
     Dosage: LAST DOSE PRIOR TO SAE: 29/DEC/2013
     Route: 048
     Dates: start: 20131225
  5. CARMUSTINE [Suspect]
     Indication: MALIGNANT LYMPHOID NEOPLASM
     Dosage: LAST DOSE PRIOR TO SAE: 28/DEC/2013
     Route: 042
     Dates: start: 20131225
  6. PANTOPRAZOL [Concomitant]
     Indication: PROPHYLAXIS AGAINST GASTROINTESTINAL ULCER
     Route: 048
     Dates: start: 20131229, end: 20140111

REACTIONS (1)
  - Gastric haemorrhage [Recovered/Resolved]
